FAERS Safety Report 5979012-2 (Version None)
Quarter: 2008Q4

REPORT INFORMATION
  Report Type: 
  Country: None (occurrence: None)
  Receive Date: 20081204
  Receipt Date: 20081124
  Transmission Date: 20090506
  Serious: Yes (Death, Hospitalization)
  Sender: FDA-Public Use
  Company Number: DE-ROCHE-587005

PATIENT
  Sex: Female
  Weight: 49 kg

DRUGS (12)
  1. METHOXY POLYETHYLENE GLYCOL-EPOETIN BETA [Suspect]
     Dosage: FORM - SYRINGE
     Route: 058
     Dates: start: 20080507, end: 20080909
  2. METOPROLOL TARTRATE [Concomitant]
     Dates: start: 20000101
  3. ISOCET [Concomitant]
     Dates: start: 20080403
  4. TOREM [Concomitant]
     Dates: start: 20080403
  5. DELIX [Concomitant]
     Dates: start: 20080403
  6. ASPIRIN [Concomitant]
     Dates: end: 20080708
  7. FALITHROM [Concomitant]
     Dates: end: 20080708
  8. ALLOPURINOL [Concomitant]
  9. OMEPRAZOLE [Concomitant]
  10. ENTONOX [Concomitant]
     Dosage: STRENGTH: 50
  11. EINSALPHA [Concomitant]
     Dates: start: 20080805
  12. DEKRISTOL [Concomitant]
     Dosage: UNIT: IE/M
     Dates: start: 20080805

REACTIONS (2)
  - DYSPNOEA [None]
  - PULMONARY EMBOLISM [None]
